FAERS Safety Report 9894411 (Version 7)
Quarter: 2014Q3

REPORT INFORMATION
  Report Type: Report from Study
  Country: BE (occurrence: BE)
  Receive Date: 20140213
  Receipt Date: 20140822
  Transmission Date: 20150326
  Serious: Yes (Hospitalization)
  Sender: FDA-Public Use
  Company Number: PHHY2014BE016225

PATIENT
  Age: 59 Year
  Sex: Female

DRUGS (31)
  1. EMEND [Concomitant]
     Active Substance: APREPITANT
     Dosage: 80 MG, UNK
     Route: 048
     Dates: start: 20131022, end: 20131023
  2. MEDROL [Concomitant]
     Active Substance: METHYLPREDNISOLONE
     Indication: NAUSEA
     Dosage: 48 MG, UNK
     Route: 048
     Dates: start: 20131022, end: 20131024
  3. CISPLATIN. [Suspect]
     Active Substance: CISPLATIN
     Indication: SQUAMOUS CELL CARCINOMA OF HEAD AND NECK
     Dosage: 100 MG/M2 1 IN 3 WEEK
     Route: 042
     Dates: start: 20131021
  4. EMEND [Concomitant]
     Active Substance: APREPITANT
     Indication: PREMEDICATION
     Dosage: 125 MG, UNK
     Route: 048
     Dates: start: 20131021, end: 20131021
  5. ZYRTEC [Concomitant]
     Active Substance: CETIRIZINE HYDROCHLORIDE
     Indication: PREMEDICATION
     Dosage: 20 DF, UNK
     Route: 048
     Dates: start: 20131021, end: 20131021
  6. LITICAN [Concomitant]
     Active Substance: ALIZAPRIDE HYDROCHLORIDE
     Indication: VOMITING
     Dosage: 50 MG, UNK
     Route: 042
     Dates: start: 20131029
  7. HYOSCINE [Concomitant]
     Active Substance: SCOPOLAMINE
  8. 5-FLUOROURACIL [Suspect]
     Active Substance: FLUOROURACIL
     Route: 042
     Dates: start: 20131217
  9. ATROVENT [Concomitant]
     Active Substance: IPRATROPIUM BROMIDE
     Indication: COUGH
     Dosage: 20 UG, UNK
     Route: 055
  10. LIDOCAINE. [Concomitant]
     Active Substance: LIDOCAINE
     Indication: MUCOSAL INFLAMMATION
     Route: 061
     Dates: start: 20131031, end: 20131115
  11. DAFALGAN [Concomitant]
     Active Substance: ACETAMINOPHEN
     Indication: PAIN
     Dosage: 1 G, UNK
     Route: 048
     Dates: start: 20131029
  12. GLYCOPHOS [Concomitant]
     Active Substance: SODIUM GLYCEROPHOSPHATE ANHYDROUS
     Indication: HYPOPHOSPHATAEMIA
     Dosage: UNK
     Route: 042
     Dates: start: 20131105, end: 20131108
  13. LYSANXIA [Concomitant]
     Active Substance: PRAZEPAM
     Indication: ANXIETY
     Dosage: 10 GTT, UNK
     Route: 048
  14. 5-FLUOROURACIL [Suspect]
     Active Substance: FLUOROURACIL
     Indication: SQUAMOUS CELL CARCINOMA OF HEAD AND NECK
     Dosage: 1000 MG/M2, 1 IN 3 WEEK
     Route: 042
     Dates: start: 20131021
  15. ZANTAC [Concomitant]
     Active Substance: RANITIDINE HYDROCHLORIDE
     Indication: GASTROOESOPHAGEAL REFLUX DISEASE
     Dosage: 150 MG, UNK
     Route: 048
  16. ALPRAZOLAM. [Concomitant]
     Active Substance: ALPRAZOLAM
  17. GLYCOLATE [Concomitant]
  18. ACETYLCYSTEINE. [Concomitant]
     Active Substance: ACETYLCYSTEINE
  19. CISPLATIN. [Suspect]
     Active Substance: CISPLATIN
     Route: 042
     Dates: start: 20131217
  20. DEXAMETHASONE. [Concomitant]
     Active Substance: DEXAMETHASONE
     Indication: PREMEDICATION
     Dosage: 10 MG, UNK
     Route: 042
     Dates: start: 20131021, end: 20131021
  21. DUOVENT [Concomitant]
     Active Substance: FENOTEROL HYDROBROMIDE
     Dosage: 4 ML, UNK
     Dates: start: 20131029, end: 20131118
  22. ESOMEPRAZOLE [Concomitant]
     Active Substance: ESOMEPRAZOLE
  23. XANAX [Concomitant]
     Active Substance: ALPRAZOLAM
     Indication: ANXIETY
     Dosage: UNK
     Route: 048
     Dates: start: 20131104
  24. IMODIUM [Concomitant]
     Active Substance: LOPERAMIDE HYDROCHLORIDE
     Indication: DIARRHOEA
     Dosage: 2 MG, UNK
     Route: 048
     Dates: start: 20131029
  25. ONDANSETRON [Concomitant]
     Active Substance: ONDANSETRON
     Indication: PREMEDICATION
     Dosage: 8 MG, UNK
     Route: 042
     Dates: start: 20131021, end: 20131021
  26. LASIX [Concomitant]
     Active Substance: FUROSEMIDE
     Indication: POLYURIA
     Dosage: 20 MG, UNK
     Route: 042
     Dates: start: 20131021, end: 20131021
  27. LIDOCAINE. [Concomitant]
     Active Substance: LIDOCAINE
     Route: 061
     Dates: start: 20131101, end: 20131115
  28. BUSCOPAN [Concomitant]
     Active Substance: BUTYLSCOPOLAMINE BROMIDE
     Indication: ABDOMINAL PAIN
     Dosage: 20 MG, UNK
     Route: 042
     Dates: start: 20131029, end: 201311
  29. AMOXICILLIN/CLAVULANIC ACID [Concomitant]
     Active Substance: AMOXICILLIN\CLAVULANIC ACID
  30. RED BLOOD CELLS [Concomitant]
     Active Substance: HUMAN RED BLOOD CELL
  31. PANTOMED//PANTOPRAZOLE SODIUM SESQUIHYDRATE [Concomitant]
     Indication: GASTROOESOPHAGEAL REFLUX DISEASE
     Dosage: 20 MG, UNK
     Route: 048

REACTIONS (11)
  - Hypokalaemia [Recovered/Resolved]
  - Renal failure acute [Recovered/Resolved]
  - Vomiting [Recovered/Resolved]
  - Hypomagnesaemia [Recovered/Resolved]
  - Nausea [Recovered/Resolved]
  - Hyponatraemia [Recovered/Resolved]
  - Dehydration [Recovered/Resolved]
  - Fatigue [Recovered/Resolved]
  - Febrile neutropenia [Recovered/Resolved]
  - Pyrexia [Recovered/Resolved]
  - Hypocalcaemia [Recovered/Resolved]

NARRATIVE: CASE EVENT DATE: 20131026
